FAERS Safety Report 7391320-X (Version None)
Quarter: 2011Q1

REPORT INFORMATION
  Report Type: 
  Country: None (occurrence: None)
  Receive Date: 20110324
  Receipt Date: 20110314
  Transmission Date: 20110831
  Serious: Yes (Congenital Anomaly)
  Sender: FDA-Public Use
  Company Number: 1000019384

PATIENT
  Sex: Female
  Weight: 1.76 kg

DRUGS (1)
  1. ESCITALOPRAM OXALATE [Suspect]
     Dosage: 10 MG (10 MG, 1 IN 1 D), TRANSPLACENTAL
     Route: 064

REACTIONS (3)
  - ATRIAL SEPTAL DEFECT [None]
  - DUODENAL ATRESIA [None]
  - MATERNAL DRUGS AFFECTING FOETUS [None]
